FAERS Safety Report 6727335-1 (Version None)
Quarter: 2010Q2

REPORT INFORMATION
  Report Type: 
  Country: None (occurrence: None)
  Receive Date: 20100512
  Receipt Date: 20100412
  Transmission Date: 20101027
  Serious: No
  Sender: FDA-Public Use
  Company Number: 1000013136

PATIENT
  Age: 49 Year
  Sex: Female

DRUGS (5)
  1. SAVELLA [Suspect]
     Indication: FIBROMYALGIA
     Dosage: 12.5 MG(12.5 MG,1IN1D),ORAL 25 MG (12.5 MG, 2 IN 1 D), ORAL 50 MG (25 MG, 2 IN 1 D),ORAL100MG(50MG,
     Route: 048
     Dates: start: 20100201, end: 20100201
  2. SAVELLA [Suspect]
     Indication: FIBROMYALGIA
     Dosage: 12.5 MG(12.5 MG,1IN1D),ORAL 25 MG (12.5 MG, 2 IN 1 D), ORAL 50 MG (25 MG, 2 IN 1 D),ORAL100MG(50MG,
     Route: 048
     Dates: start: 20100201, end: 20100201
  3. SAVELLA [Suspect]
     Indication: FIBROMYALGIA
     Dosage: 12.5 MG(12.5 MG,1IN1D),ORAL 25 MG (12.5 MG, 2 IN 1 D), ORAL 50 MG (25 MG, 2 IN 1 D),ORAL100MG(50MG,
     Route: 048
     Dates: start: 20100201, end: 20100201
  4. SAVELLA [Suspect]
     Indication: FIBROMYALGIA
     Dosage: 12.5 MG(12.5 MG,1IN1D),ORAL 25 MG (12.5 MG, 2 IN 1 D), ORAL 50 MG (25 MG, 2 IN 1 D),ORAL100MG(50MG,
     Route: 048
     Dates: start: 20100201
  5. OXYCONTIN [Concomitant]

REACTIONS (1)
  - DIZZINESS [None]
